FAERS Safety Report 18729964 (Version 1)
Quarter: 2021Q1

REPORT INFORMATION
  Report Type: Spontaneous
  Country: GB (occurrence: GB)
  Receive Date: 20210112
  Receipt Date: 20210112
  Transmission Date: 20210419
  Serious: Yes (Hospitalization, Other)
  Sender: FDA-Public Use
  Company Number: GB-GLAXOSMITHKLINE-GB2020GSK259612

PATIENT
  Age: 66 Year
  Sex: Female

DRUGS (2)
  1. ACICLOVIR [Suspect]
     Active Substance: ACYCLOVIR
     Indication: PROPHYLAXIS
     Dosage: 200 MG, TID (HIGH DOSE )
     Route: 048
  2. ACICLOVIR [Suspect]
     Active Substance: ACYCLOVIR
     Indication: HERPES ZOSTER
     Dosage: UNK
     Route: 048

REACTIONS (16)
  - Thrombocytopenia [Unknown]
  - Abdominal discomfort [Unknown]
  - Crystal nephropathy [Unknown]
  - Acute kidney injury [Unknown]
  - Renal tubular necrosis [Recovering/Resolving]
  - Hypovolaemia [Unknown]
  - Palpitations [Unknown]
  - Dehydration [Unknown]
  - Renal vasculitis [Unknown]
  - Renal failure [Unknown]
  - Hypotension [Unknown]
  - Atrial flutter [Unknown]
  - Blood creatinine increased [Unknown]
  - Duodenal ulcer haemorrhage [Unknown]
  - Confusional state [Unknown]
  - Dyspnoea [Unknown]
